FAERS Safety Report 4772216-6 (Version None)
Quarter: 2005Q3

REPORT INFORMATION
  Report Type: 
  Country: None (occurrence: None)
  Receive Date: 20050919
  Receipt Date: 20050126
  Transmission Date: 20060218
  Serious: No
  Sender: FDA-Public Use
  Company Number: US-BRISTOL-MYERS SQUIBB COMPANY-12840153

PATIENT
  Age: 58 Year
  Sex: Female

DRUGS (6)
  1. DEFINITY [Suspect]
     Indication: CHEST PAIN
     Dosage: ADMINISTERED WITH 8CC OF SALINE
     Route: 040
     Dates: start: 20050125, end: 20050125
  2. COUMADIN [Concomitant]
     Route: 048
  3. LASIX [Concomitant]
     Route: 048
  4. DIOVAN [Concomitant]
     Route: 048
  5. BETAPACE [Concomitant]
  6. SYNTHROID [Concomitant]
     Route: 048

REACTIONS (3)
  - BACK PAIN [None]
  - CHEST PAIN [None]
  - MUSCLE SPASMS [None]
